FAERS Safety Report 13266738 (Version 3)
Quarter: 2018Q1

REPORT INFORMATION
  Report Type: Report from Study
  Country: DE (occurrence: DE)
  Receive Date: 20170224
  Receipt Date: 20180323
  Transmission Date: 20180508
  Serious: Yes (Hospitalization, Other)
  Sender: FDA-Public Use
  Company Number: DE-ROCHE-1896867

PATIENT
  Sex: Female

DRUGS (14)
  1. RITUXIMAB. [Suspect]
     Active Substance: RITUXIMAB
     Indication: B-CELL LYMPHOMA
     Dosage: TREATMENT CYCLE DAY 0?MOST RECENT DATE OF INFUSION 30/JAN/2017
     Route: 042
     Dates: start: 20161127
  2. PREDNISOLONE. [Suspect]
     Active Substance: PREDNISOLONE
     Indication: B-CELL LYMPHOMA
     Dosage: TREATMENT CYCLE DAY 1 TO 5?MOST RECENT DATE OF TREATMENT 31/JAN/2017
     Route: 048
     Dates: start: 20161128
  3. PEGFILGRASTIM [Suspect]
     Active Substance: PEGFILGRASTIM
     Indication: B-CELL LYMPHOMA
     Dosage: TREATMENT CYCLE DAY 2
     Route: 058
     Dates: start: 20161129
  4. MOXONIDIN [Concomitant]
     Active Substance: MOXONIDINE
     Indication: HYPERTENSION
     Route: 048
     Dates: start: 20161109
  5. METOPROLOL. [Concomitant]
     Active Substance: METOPROLOL
     Indication: HYPERTENSION
     Route: 048
     Dates: start: 20161109
  6. METOPROLOL. [Concomitant]
     Active Substance: METOPROLOL
     Route: 048
     Dates: start: 20161109
  7. AMLODIPINE [Concomitant]
     Active Substance: AMLODIPINE BESYLATE
     Indication: HYPERTENSION
     Route: 048
     Dates: start: 20161112
  8. MOXONIDIN [Concomitant]
     Active Substance: MOXONIDINE
     Route: 048
     Dates: start: 20161109
  9. DOXORUBICINE [Suspect]
     Active Substance: DOXORUBICIN
     Indication: B-CELL LYMPHOMA
     Dosage: TREATMENT CYCLE DAY 1?MOST RECENT DATE OF TREATMENT 31/JAN/2017
     Route: 042
     Dates: start: 20161128
  10. PANTOPRAZOL [Concomitant]
     Active Substance: PANTOPRAZOLE SODIUM
     Indication: PROPHYLAXIS
     Route: 048
     Dates: start: 20161109
  11. CYCLOPHOSPHAMIDE. [Suspect]
     Active Substance: CYCLOPHOSPHAMIDE
     Indication: B-CELL LYMPHOMA
     Dosage: TREATMENT CYCLE DAY 1?MOST RECENT DATE OF TREATMENT 31/JAN/2017
     Route: 042
     Dates: start: 20161128
  12. VINCRISTINE [Suspect]
     Active Substance: VINCRISTINE
     Indication: B-CELL LYMPHOMA
     Dosage: TREATMENT CYCLE DAY 1?MOST RECENT DATE OF TREATMENT 31/JAN/2017
     Route: 042
     Dates: start: 20161128
  13. XIPAMIDE [Concomitant]
     Active Substance: XIPAMIDE
     Indication: HYPERTENSION
     Route: 048
     Dates: start: 20161109
  14. SIMVASTATIN. [Concomitant]
     Active Substance: SIMVASTATIN
     Indication: HYPERTENSION
     Dosage: 0 -0-1/2
     Route: 048
     Dates: start: 20161222

REACTIONS (2)
  - Colitis [Recovering/Resolving]
  - Neutrophil count decreased [Unknown]

NARRATIVE: CASE EVENT DATE: 20170215
